FAERS Safety Report 12865700 (Version 1)
Quarter: 2016Q4

REPORT INFORMATION
  Report Type: Spontaneous
  Country: FR (occurrence: FR)
  Receive Date: 20161020
  Receipt Date: 20161020
  Transmission Date: 20170207
  Serious: Yes (Death)
  Sender: FDA-Public Use
  Company Number: FR-PFIZER INC-2016486747

PATIENT
  Age: 58 Year
  Sex: Female

DRUGS (2)
  1. ATRACURIUM BESILATE [Suspect]
     Active Substance: ATRACURIUM BESYLATE
     Dosage: 50 MG/5 ML
     Route: 042
     Dates: start: 20161003
  2. MIDAZOLAM [Concomitant]
     Active Substance: MIDAZOLAM\MIDAZOLAM HYDROCHLORIDE
     Dosage: 5 MG/1 ML

REACTIONS (3)
  - Wrong drug administered [Fatal]
  - Cardio-respiratory arrest [Fatal]
  - Product packaging confusion [Fatal]

NARRATIVE: CASE EVENT DATE: 20161003
